FAERS Safety Report 26207218 (Version 1)
Quarter: 2025Q4

REPORT INFORMATION
  Report Type: Spontaneous
  Country: JP (occurrence: JP)
  Receive Date: 20251229
  Receipt Date: 20251229
  Transmission Date: 20260118
  Serious: Yes (Other)
  Sender: ALEXION PHARMACEUTICALS
  Company Number: JP-AstraZeneca-CH-00961611A

PATIENT
  Age: 7 Decade
  Sex: Female

DRUGS (2)
  1. TEZSPIRE [Suspect]
     Active Substance: TEZEPELUMAB-EKKO
     Dosage: 210 MILLIGRAM, Q4W
     Route: 065
     Dates: start: 202407
  2. TEZSPIRE [Suspect]
     Active Substance: TEZEPELUMAB-EKKO

REACTIONS (3)
  - Mass [Recovered/Resolved]
  - Swelling of eyelid [Recovered/Resolved]
  - Conjunctival papillae [Recovered/Resolved]

NARRATIVE: CASE EVENT DATE: 20240701
